FAERS Safety Report 5509868-9 (Version None)
Quarter: 2007Q4

REPORT INFORMATION
  Report Type: 
  Country: None (occurrence: None)
  Receive Date: 20071107
  Receipt Date: 20071107
  Transmission Date: 20080405
  Serious: Yes (Hospitalization)
  Sender: FDA-Public Use
  Company Number: None

PATIENT
  Sex: Male
  Weight: 96.82 kg

DRUGS (1)
  1. TEMOZOLOMIDE [Suspect]
     Dosage: 8200 MG

REACTIONS (7)
  - ASTHENIA [None]
  - BRONCHOALVEOLAR LAVAGE ABNORMAL [None]
  - CYTOMEGALOVIRUS INFECTION [None]
  - INCORRECT DOSE ADMINISTERED [None]
  - PLATELET COUNT ABNORMAL [None]
  - TRICUSPID VALVE INCOMPETENCE [None]
  - WHITE BLOOD CELL COUNT ABNORMAL [None]
